FAERS Safety Report 7505336-3 (Version None)
Quarter: 2011Q2

REPORT INFORMATION
  Report Type: 
  Country: None (occurrence: None)
  Receive Date: 20110526
  Receipt Date: 20110518
  Transmission Date: 20111010
  Serious: Yes (Hospitalization, Other)
  Sender: FDA-Public Use
  Company Number: US-ABBOTT-11P-163-0726841-00

PATIENT
  Sex: Female
  Weight: 113.5 kg

DRUGS (4)
  1. THYROID TAB [Concomitant]
     Indication: HYPOTHYROIDISM
     Route: 048
  2. SAVELLA [Concomitant]
     Indication: FIBROMYALGIA
     Route: 048
  3. HUMIRA [Suspect]
     Indication: RHEUMATOID ARTHRITIS
     Route: 058
     Dates: start: 20080107, end: 20110301
  4. XANAX [Concomitant]
     Indication: FEELING OF RELAXATION

REACTIONS (10)
  - INTERVERTEBRAL DISC SPACE NARROWING [None]
  - SPINAL COLUMN STENOSIS [None]
  - NEURALGIA [None]
  - ARTHRITIS [None]
  - INTERVERTEBRAL DISC DISORDER [None]
  - NERVE COMPRESSION [None]
  - POSTOPERATIVE WOUND INFECTION [None]
  - RHEUMATOID ARTHRITIS [None]
  - ARTHRALGIA [None]
  - STAPHYLOCOCCAL INFECTION [None]
